FAERS Safety Report 9959081 (Version 1)
Quarter: 2014Q1

REPORT INFORMATION
  Report Type: Report from Study
  Country: US (occurrence: US)
  Receive Date: 20140305
  Receipt Date: 20140305
  Transmission Date: 20141002
  Serious: No
  Sender: FDA-Public Use
  Company Number: US-ABBVIE-13P-163-1100649-00

PATIENT
  Age: 43 Year
  Sex: Male

DRUGS (16)
  1. HUMIRA [Suspect]
     Indication: RHEUMATOID ARTHRITIS
     Dosage: INITIAL DOSE
     Dates: start: 20130605
  2. ASACOL HD [Concomitant]
     Indication: COLITIS ULCERATIVE
  3. ASACOL HD [Concomitant]
     Indication: IRRITABLE BOWEL SYNDROME
  4. ASACOL HD [Concomitant]
     Indication: CROHN^S DISEASE
  5. DICYCLOVERINE [Concomitant]
     Indication: GASTRITIS
  6. GENERIC BACTRIM [Concomitant]
     Indication: PRODUCT USED FOR UNKNOWN INDICATION
  7. CENTRUM SILVER [Concomitant]
     Indication: PRODUCT USED FOR UNKNOWN INDICATION
  8. TYLENOL WITH CODEINE [Concomitant]
     Indication: PAIN
  9. PREDNISONE [Concomitant]
     Indication: PRODUCT USED FOR UNKNOWN INDICATION
  10. OMEPRAZOLE [Concomitant]
     Indication: GASTROOESOPHAGEAL REFLUX DISEASE
  11. TOPOMAX [Concomitant]
     Indication: PAIN
  12. VITAMIN D NOS [Concomitant]
     Indication: PRODUCT USED FOR UNKNOWN INDICATION
  13. TRAZODONE [Concomitant]
     Indication: ABNORMAL DREAMS
  14. LISINOPRIL [Concomitant]
     Indication: HYPERTENSION
  15. ANDROGEL [Concomitant]
     Indication: PRODUCT USED FOR UNKNOWN INDICATION
  16. CLARITIN D REDITABS [Concomitant]
     Indication: HYPERSENSITIVITY

REACTIONS (2)
  - Cold sweat [Recovering/Resolving]
  - Nausea [Recovering/Resolving]
